FAERS Safety Report 12101605 (Version 4)
Quarter: 2016Q1

REPORT INFORMATION
  Report Type: Report from Study
  Country: TR (occurrence: TR)
  Receive Date: 20160222
  Receipt Date: 20160321
  Transmission Date: 20160526
  Serious: Yes (Hospitalization)
  Sender: FDA-Public Use
  Company Number: TR-ABBVIE-16P-161-1562727-00

PATIENT
  Age: 77 Year
  Sex: Female
  Weight: 60 kg

DRUGS (14)
  1. VENLAFAXINE [Concomitant]
     Active Substance: VENLAFAXINE HYDROCHLORIDE
     Indication: ANTIDEPRESSANT THERAPY
     Route: 050
  2. IRBESARTAN. [Concomitant]
     Active Substance: IRBESARTAN
     Indication: HYPERTENSION
     Route: 050
  3. IRBESARTAN. [Concomitant]
     Active Substance: IRBESARTAN
     Indication: PROPHYLAXIS
  4. MADOPAR [Concomitant]
     Active Substance: BENSERAZIDE HYDROCHLORIDE\LEVODOPA
     Indication: PARKINSON^S DISEASE
     Route: 050
     Dates: start: 201506
  5. DUODOPA [Suspect]
     Active Substance: CARBIDOPA\LEVODOPA
     Indication: PARKINSON^S DISEASE
     Dosage: MORNING DOSE: 4.5 ML, CONTINUOUS DOSE: 3.8 ML, EXTRA DOSE: 1 ML
     Route: 050
     Dates: start: 20160128, end: 20160311
  6. GASTRAZOL L [Concomitant]
     Indication: PROPHYLAXIS
  7. GLUTAMINE [Concomitant]
     Active Substance: GLUTAMINE
     Indication: NUTRITIONAL SUPPLEMENTATION
     Route: 050
  8. MOTILIUM [Concomitant]
     Active Substance: DOMPERIDONE
     Indication: ANTIEMETIC SUPPORTIVE CARE
     Route: 050
     Dates: start: 201506
  9. CALCIMAX [Concomitant]
     Active Substance: CALCIUM CARBONATE\CHOLECALCIFEROL
     Indication: HIP FRACTURE
     Route: 050
  10. ERCEFURYL [Concomitant]
     Indication: DIARRHOEA
     Route: 050
  11. CLEXANE [Concomitant]
     Active Substance: ENOXAPARIN SODIUM
     Indication: THROMBOSIS PROPHYLAXIS
     Route: 058
  12. GASTRAZOL L [Concomitant]
     Indication: GASTRIC DISORDER
     Route: 042
  13. EBIXA [Concomitant]
     Active Substance: MEMANTINE HYDROCHLORIDE
     Indication: DEMENTIA
     Route: 050
  14. DOENZA [Concomitant]
     Indication: DEMENTIA
     Route: 050

REACTIONS (3)
  - Skin ulcer haemorrhage [Recovered/Resolved]
  - Escherichia infection [Unknown]
  - Decubitus ulcer [Recovered/Resolved]

NARRATIVE: CASE EVENT DATE: 201602
